FAERS Safety Report 21921561 (Version 2)
Quarter: 2023Q1

REPORT INFORMATION
  Report Type: Spontaneous
  Country: US (occurrence: US)
  Receive Date: 20230127
  Receipt Date: 20230317
  Transmission Date: 20230417
  Serious: No
  Sender: FDA-Public Use
  Company Number: US-PFIZER INC-PV202300017068

PATIENT
  Age: 79 Year
  Sex: Male
  Weight: 67.574 kg

DRUGS (1)
  1. BRAFTOVI [Suspect]
     Active Substance: ENCORAFENIB
     Indication: Colon cancer metastatic
     Dosage: 75 MG
     Dates: start: 202201

REACTIONS (2)
  - Hypoacusis [Unknown]
  - Off label use [Unknown]
